FAERS Safety Report 4924503-6 (Version None)
Quarter: 2006Q1

REPORT INFORMATION
  Report Type: 
  Country: None (occurrence: None)
  Receive Date: 20060222
  Receipt Date: 20060210
  Transmission Date: 20060701
  Serious: Yes (Death)
  Sender: FDA-Public Use
  Company Number: 2006BH000495

PATIENT
  Sex: Female

DRUGS (8)
  1. DEXTROSE [Suspect]
     Indication: OVARIAN CANCER
     Dosage: 500 ML; EVERY 3 WK; IV
     Route: 042
     Dates: start: 20051221, end: 20051221
  2. DEXTROSE [Suspect]
     Indication: OVARIAN CANCER
     Dosage: 500 ML; EVERY 3 WK; IV
     Route: 042
     Dates: start: 20060110, end: 20060110
  3. SODIUM CHLORIDE 0.9% [Suspect]
     Indication: OVARIAN CANCER
     Dosage: 500 ML; EVERY 3 WK; IV
     Route: 042
     Dates: start: 20051221, end: 20051221
  4. SODIUM CHLORIDE 0.9% [Suspect]
     Indication: OVARIAN CANCER
     Dosage: 500 ML; EVERY 3 WK; IV
     Route: 042
     Dates: start: 20060110, end: 20060110
  5. CARBOPLATIN [Suspect]
     Indication: OVARIAN CANCER
     Dosage: 660 MG; EVERY 3 WK; IV; 590 MG; EVERY 3 WK; IV
     Route: 042
     Dates: start: 20051221, end: 20051221
  6. CARBOPLATIN [Suspect]
     Indication: OVARIAN CANCER
     Dosage: 660 MG; EVERY 3 WK; IV; 590 MG; EVERY 3 WK; IV
     Route: 042
     Dates: start: 20060110, end: 20060110
  7. PACLITAXEL [Suspect]
     Dosage: 310 MG; EVERY 3 WK; IV
     Route: 042
     Dates: start: 20051221, end: 20051221
  8. PACLITAXEL [Suspect]
     Dosage: 310 MG; EVERY 3 WK; IV
     Route: 042
     Dates: start: 20060110, end: 20060110

REACTIONS (2)
  - MYOCARDIAL INFARCTION [None]
  - PERITONEAL CARCINOMA [None]
